FAERS Safety Report 4769022-5 (Version None)
Quarter: 2005Q3

REPORT INFORMATION
  Report Type: 
  Country: None (occurrence: None)
  Receive Date: 20050913
  Receipt Date: 20050901
  Transmission Date: 20060218
  Serious: Yes (Hospitalization)
  Sender: FDA-Public Use
  Company Number: 2005122902

PATIENT
  Age: 68 Year
  Sex: Female

DRUGS (5)
  1. PREDNISONE [Suspect]
     Indication: ASTHMA
     Dosage: 20 MG (1 D)
  2. THEOPHYLLINE [Suspect]
     Indication: ILL-DEFINED DISORDER
  3. METFORMIN HCL [Suspect]
     Indication: ILL-DEFINED DISORDER
  4. MONTELUKAST (MONTELUKAST) [Suspect]
     Indication: ASTHMA
     Dosage: 10 MG (1 D)
  5. FLIXOTIDE ^GLAXO WELLCOME^ (FLUTICASONE PROPIONATE) [Suspect]
     Indication: ILL-DEFINED DISORDER

REACTIONS (3)
  - ESCHERICHIA INFECTION [None]
  - PERITONITIS BACTERIAL [None]
  - PURULENCE [None]
